FAERS Safety Report 5350390-0 (Version None)
Quarter: 2007Q2

REPORT INFORMATION
  Report Type: 
  Country: None (occurrence: None)
  Receive Date: 20070606
  Receipt Date: 20070606
  Transmission Date: 20071010
  Serious: Yes (Other)
  Sender: FDA-Public Use
  Company Number: None

PATIENT
  Age: 59 Year
  Sex: Male
  Weight: 124 kg

DRUGS (2)
  1. INTEGRILIN [Suspect]
     Indication: STENT PLACEMENT
     Dosage: 23MG BOLUS 1X DOSE
  2. INTEGRILIN [Suspect]
     Indication: STENT PLACEMENT
     Dosage: 20ML/HR

REACTIONS (1)
  - PLATELET COUNT DECREASED [None]
